FAERS Safety Report 7688363-5 (Version None)
Quarter: 2011Q3

REPORT INFORMATION
  Report Type: 
  Country: None (occurrence: None)
  Receive Date: 20110817
  Receipt Date: 20110805
  Transmission Date: 20111222
  Serious: Yes (Death)
  Sender: FDA-Public Use
  Company Number: RO-SANOFI-AVENTIS-2011SA043761

PATIENT
  Age: 77 Year
  Sex: Male
  Weight: 77 kg

DRUGS (7)
  1. METOPROLOL TARTRATE [Concomitant]
     Route: 065
  2. PERINDOPRIL [Concomitant]
     Route: 065
  3. ROSUVASTATIN [Concomitant]
     Route: 065
  4. DIGOXIN [Concomitant]
     Route: 065
  5. DRONEDARONE HCL [Suspect]
     Indication: ATRIAL FIBRILLATION
     Route: 048
     Dates: start: 20110606
  6. FUROSEMIDE [Concomitant]
     Route: 065
  7. ACENOCOUMAROL [Concomitant]
     Route: 065

REACTIONS (1)
  - CARDIAC DEATH [None]
